FAERS Safety Report 4359333-X (Version None)
Quarter: 2004Q2

REPORT INFORMATION
  Report Type: 
  Country: None (occurrence: None)
  Receive Date: 20040518
  Receipt Date: 20040506
  Transmission Date: 20050107
  Serious: Yes (Hospitalization)
  Sender: FDA-Public Use
  Company Number: US-BRISTOL-MYERS SQUIBB COMPANY-12581021

PATIENT
  Age: 53 Year
  Sex: Female
  Weight: 68 kg

DRUGS (8)
  1. TAXOL [Suspect]
     Indication: BREAST CANCER
     Route: 042
  2. FLONASE [Concomitant]
  3. CLARITIN [Concomitant]
  4. COREG [Concomitant]
  5. AFRIN [Concomitant]
  6. DIOVAN [Concomitant]
  7. PRIMAXIN [Concomitant]
     Route: 042
  8. VANCOMYCIN [Concomitant]
     Route: 042

REACTIONS (1)
  - VASCULITIS [None]
